FAERS Safety Report 9869924 (Version 1)
Quarter: 2014Q1

REPORT INFORMATION
  Report Type: Spontaneous
  Country: US (occurrence: None)
  Receive Date: 20140203
  Receipt Date: 20140203
  Transmission Date: 20141002
  Serious: Yes (Hospitalization, Other)
  Sender: FDA-Public Use
  Company Number: ADR-2014-00146

PATIENT
  Age: 44 Year
  Sex: Female

DRUGS (6)
  1. BACLOFEN INTRATHECAL 200 MCG/ML [Suspect]
  2. MORPHINE [Suspect]
  3. CLONIDINE (INTRATHECAL) 400MCG/ML [Concomitant]
  4. SUFENTANYL (INTRATEHCAL) 250MCG/ML [Concomitant]
  5. FENTANYL (TRASNDERMAL PATCH) 75 MCG/72 HOURS [Concomitant]
  6. PERCOCET (ORAL) [Concomitant]

REACTIONS (4)
  - Bradycardia [None]
  - Mass [None]
  - Inflammation [None]
  - Sensory loss [None]
